FAERS Safety Report 5745420-8 (Version None)
Quarter: 2008Q2

REPORT INFORMATION
  Report Type: 
  Country: None (occurrence: None)
  Receive Date: 20080521
  Receipt Date: 20080519
  Transmission Date: 20081010
  Serious: Yes (Hospitalization)
  Sender: FDA-Public Use
  Company Number: FR-BRISTOL-MYERS SQUIBB COMPANY-14197198

PATIENT
  Age: 71 Year
  Sex: Male

DRUGS (1)
  1. MUCOMYSTENDO [Suspect]

REACTIONS (1)
  - ASTHMA [None]
